FAERS Safety Report 5141360-6 (Version None)
Quarter: 2006Q4

REPORT INFORMATION
  Report Type: 
  Country: None (occurrence: None)
  Receive Date: 20061101
  Receipt Date: 20061023
  Transmission Date: 20070319
  Serious: Yes (Hospitalization)
  Sender: FDA-Public Use
  Company Number: FR-ABBOTT-06P-056-0347558-00

PATIENT
  Sex: Male
  Weight: 69 kg

DRUGS (11)
  1. RITONAVIR SOFT GELATIN CAPSULES [Suspect]
     Indication: HIV INFECTION
     Dosage: 1 DOSE
     Route: 048
     Dates: start: 20060602
  2. TMC125 (BLINDED) [Concomitant]
     Indication: HIV INFECTION
     Dosage: 2 DOSES
     Route: 048
     Dates: start: 20060702
  3. TMC114 (DARUNAVIR) [Concomitant]
     Indication: HIV INFECTION
     Dosage: 2 DOSES
     Route: 048
     Dates: start: 20060602
  4. LAMIVUDINE [Concomitant]
     Indication: DRUG USE FOR UNKNOWN INDICATION
     Route: 048
     Dates: start: 20050706
  5. FUZEON [Concomitant]
     Indication: HIV INFECTION
     Route: 058
     Dates: start: 20060925
  6. FENOFIBRATE [Concomitant]
     Indication: HYPERTRIGLYCERIDAEMIA
     Dosage: 1 DOSE
     Route: 048
  7. BACTRIM [Concomitant]
     Indication: PNEUMOCYSTIS JIROVECI PNEUMONIA
     Dosage: 1 DOSE
     Route: 048
  8. LOPERAMIDE HYDROCHLORIDE [Concomitant]
     Indication: DIARRHOEA
     Dosage: 2 DOSES
     Route: 048
  9. ALUMINUM HYDROXIDE AND MAGNESIUM TRISILICATE [Concomitant]
     Indication: DIARRHOEA
     Dosage: 1 DOSE
     Route: 048
  10. SODIUM BICARBONATE [Concomitant]
     Indication: ORAL CANDIDIASIS
     Dosage: 1 DOSE
     Route: 048
     Dates: start: 20060817
  11. FLUCONAZOLE [Concomitant]
     Indication: PALATAL DISORDER
     Route: 048
     Dates: start: 20060905

REACTIONS (1)
  - PULMONARY EMBOLISM [None]
